FAERS Safety Report 5644008-7 (Version None)
Quarter: 2008Q1

REPORT INFORMATION
  Report Type: 
  Country: None (occurrence: None)
  Receive Date: 20080131
  Receipt Date: 20071211
  Transmission Date: 20080703
  Serious: Yes (Death)
  Sender: FDA-Public Use
  Company Number: 163-21880-07111211

PATIENT
  Age: 88 Year
  Sex: Female

DRUGS (1)
  1. REVLIMID [Suspect]
     Indication: MULTIPLE MYELOMA
     Dosage: DAILY FOR 21 DAYS - 28 DAYS
     Dates: start: 20070910, end: 20071112

REACTIONS (3)
  - ASTHENIA [None]
  - CARDIAC FAILURE [None]
  - MALAISE [None]
